FAERS Safety Report 11839613 (Version 1)
Quarter: 2015Q4

REPORT INFORMATION
  Report Type: Spontaneous
  Country: US (occurrence: None)
  Receive Date: 20151215
  Receipt Date: 20151215
  Transmission Date: 20160305
  Serious: Yes (Hospitalization)
  Sender: FDA-Public Use
  Company Number: None

PATIENT
  Age: 7 Year
  Sex: Female
  Weight: 22.7 kg

DRUGS (10)
  1. CYTARABINE. [Suspect]
     Active Substance: CYTARABINE
     Dates: end: 20151118
  2. METHOTREXATE [Suspect]
     Active Substance: METHOTREXATE
     Dates: end: 20151118
  3. HYDROCORTISONE. [Suspect]
     Active Substance: HYDROCORTISONE
     Dates: end: 20151118
  4. MERCAPTOPURINE. [Suspect]
     Active Substance: MERCAPTOPURINE
     Dates: end: 20151124
  5. CYCLOPHOSPHAMIDE. [Suspect]
     Active Substance: CYCLOPHOSPHAMIDE
     Dates: end: 20150128
  6. VINCRISTINE SULFATE. [Suspect]
     Active Substance: VINCRISTINE SULFATE
     Dates: end: 20151118
  7. DOXORUBICIN HYDROCHLORIDE. [Suspect]
     Active Substance: DOXORUBICIN HYDROCHLORIDE
     Dates: end: 20150109
  8. PREDNISONE. [Suspect]
     Active Substance: PREDNISONE
     Dates: end: 20151122
  9. DEXAMETHASONE. [Suspect]
     Active Substance: DEXAMETHASONE
     Dates: end: 20150115
  10. ONCASPAR [Suspect]
     Active Substance: PEGASPARGASE
     Dates: end: 20150211

REACTIONS (9)
  - Dehydration [None]
  - Tachycardia [None]
  - Fatigue [None]
  - Respiratory failure [None]
  - Histiocytosis haematophagic [None]
  - Hypertension [None]
  - Brain oedema [None]
  - Brain herniation [None]
  - Unresponsive to stimuli [None]

NARRATIVE: CASE EVENT DATE: 20151125
